FAERS Safety Report 6133839-5 (Version None)
Quarter: 2009Q1

REPORT INFORMATION
  Report Type: 
  Country: None (occurrence: None)
  Receive Date: 20090326
  Receipt Date: 20090319
  Transmission Date: 20090719
  Serious: Yes (Hospitalization)
  Sender: FDA-Public Use
  Company Number: US-PFIZER INC-2009177049

PATIENT
  Sex: Male
  Weight: 95 kg

DRUGS (21)
  1. NAPROXEN [Suspect]
     Indication: OSTEOARTHRITIS
     Dosage: UNK
     Route: 048
     Dates: start: 20080702, end: 20081115
  2. BLINDED *PLACEBO [Suspect]
     Indication: OSTEOARTHRITIS
     Dosage: UNK
     Route: 048
     Dates: start: 20080702, end: 20081115
  3. BLINDED CELECOXIB [Suspect]
     Indication: OSTEOARTHRITIS
     Dosage: UNK
     Route: 048
     Dates: start: 20080702, end: 20081115
  4. IBUPROFEN TABLETS [Suspect]
     Indication: OSTEOARTHRITIS
     Dosage: UNK
     Route: 048
     Dates: start: 20080702, end: 20081115
  5. NAPROXEN [Suspect]
     Dosage: UNK
     Route: 048
     Dates: start: 20080702, end: 20081115
  6. NAPROXEN [Suspect]
     Indication: RHEUMATOID ARTHRITIS
  7. BLINDED *PLACEBO [Suspect]
     Indication: RHEUMATOID ARTHRITIS
  8. BLINDED CELECOXIB [Suspect]
     Indication: RHEUMATOID ARTHRITIS
  9. IBUPROFEN TABLETS [Suspect]
     Indication: RHEUMATOID ARTHRITIS
  10. NAPROXEN [Suspect]
  11. LIPITOR [Concomitant]
     Indication: DYSLIPIDAEMIA
     Dosage: 10 MG, 1X/DAY
     Route: 048
     Dates: start: 19980615
  12. VASOTEC [Concomitant]
     Indication: HYPERTENSION
     Dosage: 10 MG, 1X/DAY
     Route: 048
     Dates: start: 19980615
  13. CIALIS [Concomitant]
     Indication: ERECTILE DYSFUNCTION
     Dosage: 20 MG, AS NEEDED
     Route: 048
     Dates: start: 20040615
  14. PREDNISONE [Concomitant]
     Dosage: 2.5 MG, 1X/DAY
     Route: 048
     Dates: start: 20080215
  15. PLAQUENIL [Concomitant]
     Dosage: 200 MG, 2X/DAY
     Route: 048
     Dates: start: 20080215
  16. CENTRUM [Concomitant]
     Dosage: 1 TAB DAILY
     Route: 048
     Dates: start: 19980615
  17. CHONDROITIN/GLUCOSAMINE/METHYLSULFONYLMETHANE [Concomitant]
     Dosage: 1 TAB DAILY
     Route: 048
     Dates: start: 19980615
  18. FISH OIL [Concomitant]
     Dosage: 1200 MG, 1X/DAY
     Route: 048
     Dates: start: 19980615
  19. ASCORBIC ACID [Concomitant]
     Dosage: 1000 MG, 1X/DAY
     Route: 048
     Dates: start: 19980615
  20. MOBIC [Concomitant]
     Dosage: 7.5 MG, 2X/DAY
     Route: 048
     Dates: start: 20071207
  21. KENALOG [Concomitant]
     Dosage: 80 MG, RIGHT KNEE INJECTION ONCE ON 19SEP2008 AND 12DEC2008
     Route: 014

REACTIONS (3)
  - ATRIAL FIBRILLATION [None]
  - CARDIAC FAILURE CONGESTIVE [None]
  - TACHYCARDIA [None]
